FAERS Safety Report 7265481-7 (Version None)
Quarter: 2011Q1

REPORT INFORMATION
  Report Type: 
  Country: None (occurrence: None)
  Receive Date: 20110131
  Receipt Date: 20110120
  Transmission Date: 20110831
  Serious: Yes (Hospitalization)
  Sender: FDA-Public Use
  Company Number: PHHY2011JP05109

PATIENT
  Age: 47 Year
  Sex: Male

DRUGS (1)
  1. DIOVAN [Suspect]
     Indication: HYPERTENSION
     Dosage: 80 MG DAILY
     Route: 048
     Dates: start: 20101125, end: 20101224

REACTIONS (2)
  - PYREXIA [None]
  - INAPPROPRIATE ANTIDIURETIC HORMONE SECRETION [None]
